FAERS Safety Report 7926714-4 (Version None)
Quarter: 2011Q4

REPORT INFORMATION
  Report Type: 
  Country: None (occurrence: None)
  Receive Date: 20111118
  Receipt Date: 20111108
  Transmission Date: 20120403
  Serious: Yes (Hospitalization, Other)
  Sender: FDA-Public Use
  Company Number: JP-JNJFOC-20111106931

PATIENT
  Sex: Female

DRUGS (17)
  1. LEVOFLOXACIN [Suspect]
     Route: 048
     Dates: start: 20110816, end: 20110820
  2. LEVOFLOXACIN [Suspect]
     Indication: DEVICE RELATED INFECTION
     Route: 048
     Dates: start: 20111020, end: 20111021
  3. SELBEX [Concomitant]
     Indication: GASTROOESOPHAGEAL REFLUX DISEASE
     Route: 048
     Dates: start: 20020101
  4. LEVOFLOXACIN [Suspect]
     Indication: PNEUMONIA
     Route: 048
     Dates: start: 20111020, end: 20111021
  5. LEVOFLOXACIN [Suspect]
     Route: 048
     Dates: start: 20110802, end: 20110809
  6. FLOLAN [Concomitant]
     Indication: PULMONARY HYPERTENSION
     Route: 042
     Dates: start: 20020605
  7. XYLOCAINE W/ EPINEPHRINE [Concomitant]
     Indication: INFILTRATION ANAESTHESIA
     Route: 042
     Dates: start: 20110810, end: 20110810
  8. AMBRISENTAN [Concomitant]
     Indication: PULMONARY HYPERTENSION
     Route: 048
     Dates: start: 20110802
  9. PREDNISOLONE [Concomitant]
     Indication: SYSTEMIC LUPUS ERYTHEMATOSUS
     Route: 048
     Dates: start: 19970601
  10. LEVOFLOXACIN [Suspect]
     Route: 048
     Dates: start: 20110802, end: 20110809
  11. GLAKAY [Concomitant]
     Indication: OSTEOPOROSIS
     Route: 048
     Dates: start: 20100701
  12. LANSOPRAZOLE [Concomitant]
     Indication: GASTROOESOPHAGEAL REFLUX DISEASE
     Route: 048
     Dates: start: 20100101
  13. MEILAX [Concomitant]
     Indication: ANXIETY
     Route: 048
     Dates: start: 20020601
  14. CANDESARTAN CILEXETIL [Concomitant]
     Indication: PULMONARY HYPERTENSION
     Route: 048
     Dates: start: 20020101
  15. LEVOFLOXACIN [Suspect]
     Route: 048
     Dates: start: 20110816, end: 20110820
  16. GASMOTIN [Concomitant]
     Indication: GASTROOESOPHAGEAL REFLUX DISEASE
     Route: 065
     Dates: start: 20100101
  17. NEORAL [Concomitant]
     Indication: SYSTEMIC LUPUS ERYTHEMATOSUS
     Route: 048

REACTIONS (2)
  - PAIN [None]
  - MUSCULOSKELETAL PAIN [None]
